FAERS Safety Report 5821435-6 (Version None)
Quarter: 2008Q3

REPORT INFORMATION
  Report Type: 
  Country: None (occurrence: None)
  Receive Date: 20080724
  Receipt Date: 20080718
  Transmission Date: 20090109
  Serious: Yes (Disabling)
  Sender: FDA-Public Use
  Company Number: A0738424A

PATIENT
  Age: 31 Year
  Sex: Male

DRUGS (2)
  1. ZYBAN [Suspect]
     Dosage: 150MG TWICE PER DAY
     Route: 048
     Dates: start: 20080622
  2. NO CONCURRENT MEDICATION [Concomitant]

REACTIONS (2)
  - ANGER [None]
  - HOMICIDAL IDEATION [None]
